FAERS Safety Report 5258637-6 (Version None)
Quarter: 2007Q1

REPORT INFORMATION
  Report Type: 
  Country: None (occurrence: None)
  Receive Date: 20070305
  Receipt Date: 20070220
  Transmission Date: 20070707
  Serious: Yes (Other)
  Sender: FDA-Public Use
  Company Number: 2007SP003284

PATIENT
  Age: 29 Year
  Sex: Female
  Weight: 90.7194 kg

DRUGS (4)
  1. TEMODAL [Suspect]
     Indication: OLIGODENDROGLIOMA
     Dosage: 400 MG;QD;PO; 350 MG;QD;PO
     Route: 048
     Dates: start: 20060101
  2. STEMETIL (CON.) [Concomitant]
  3. DECADRON (CON.) [Concomitant]
  4. KYTRIL (CON.) [Concomitant]

REACTIONS (16)
  - AMNESIA [None]
  - ARTHRALGIA [None]
  - CUSHING'S SYNDROME [None]
  - DYSPEPSIA [None]
  - FACE OEDEMA [None]
  - FATIGUE [None]
  - FEBRILE NEUTROPENIA [None]
  - HAEMORRHAGE [None]
  - HEADACHE [None]
  - INCREASED APPETITE [None]
  - MYALGIA [None]
  - NAUSEA [None]
  - PLATELET COUNT INCREASED [None]
  - THROMBOCYTHAEMIA [None]
  - VISUAL FIELD DEFECT [None]
  - WEIGHT INCREASED [None]
